FAERS Safety Report 7170142-9 (Version None)
Quarter: 2010Q4

REPORT INFORMATION
  Report Type: 
  Country: None (occurrence: None)
  Receive Date: 20101217
  Receipt Date: 20101130
  Transmission Date: 20110411
  Serious: No
  Sender: FDA-Public Use
  Company Number: FR-NOVOPROD-317339

PATIENT
  Age: 64 Year
  Sex: Female
  Weight: 86 kg

DRUGS (7)
  1. VICTOZA [Suspect]
     Indication: TYPE 2 DIABETES MELLITUS
     Dosage: 1.2 MG, QD
     Route: 058
     Dates: start: 20100727, end: 20101025
  2. GLUCOPHAGE [Concomitant]
     Indication: DIABETES MELLITUS
     Dosage: 3000 MG, UNK
     Route: 048
     Dates: start: 19910101
  3. CADUET [Concomitant]
     Indication: HYPERTENSION
     Dosage: 1 TAB, QD
     Route: 048
  4. NOVONORM [Concomitant]
     Indication: DIABETES MELLITUS
     Dosage: 1.5 MG, QD
     Route: 048
  5. FENOFIBRATE [Concomitant]
     Indication: DYSLIPIDAEMIA
     Dosage: 200 MG, QD
     Route: 048
  6. VASTAREL [Concomitant]
     Indication: HYPERTENSION
     Dosage: 2 TAB, QD
     Route: 048
  7. DILEX [Concomitant]
     Indication: HYPERTENSION
     Dosage: 5 MG, QD
     Route: 048

REACTIONS (2)
  - DECREASED APPETITE [None]
  - RENAL FAILURE [None]
